FAERS Safety Report 8990186 (Version 2)
Quarter: 2013Q2

REPORT INFORMATION
  Report Type: Spontaneous
  Country: PT (occurrence: PT)
  Receive Date: 20121228
  Receipt Date: 20130605
  Transmission Date: 20140414
  Serious: Yes (Death)
  Sender: FDA-Public Use
  Company Number: PT-COVIDIEN/TYCO HEALTHCARE/MALLINCKRODT-T201204406

PATIENT
  Age: 66 Year
  Sex: Female

DRUGS (7)
  1. EXALGO EXTENDED RELEASE [Suspect]
     Indication: PAIN MANAGEMENT
     Dosage: 72 MG, UNK
     Route: 048
  2. EXALGO EXTENDED RELEASE [Suspect]
     Dosage: 16 MG, UNK
     Route: 048
  3. EXALGO EXTENDED RELEASE [Suspect]
     Dosage: 32 MG, UNK
     Route: 048
  4. EXALGO EXTENDED RELEASE [Suspect]
     Dosage: 48 MG, UNK
     Route: 048
  5. EXALGO EXTENDED RELEASE [Suspect]
     Dosage: 56 MG UNK
     Route: 048
  6. GABAPENTIN [Concomitant]
     Dosage: UNK
  7. CHLOROPTIC-P [Concomitant]
     Dosage: UNK

REACTIONS (1)
  - Pancreatic carcinoma [Fatal]
